FAERS Safety Report 24336610 (Version 4)
Quarter: 2025Q3

REPORT INFORMATION
  Report Type: Spontaneous
  Country: EU (occurrence: EU)
  Receive Date: 20240919
  Receipt Date: 20250914
  Transmission Date: 20251020
  Serious: Yes (Hospitalization, Other)
  Sender: AUROBINDO
  Company Number: EU-ROCHE-10000011490

PATIENT
  Age: 70 Year
  Sex: Female

DRUGS (2)
  1. MYCOPHENOLATE MOFETIL [Suspect]
     Active Substance: MYCOPHENOLATE MOFETIL
     Indication: Prophylaxis against transplant rejection
     Route: 065
  2. TACROLIMUS [Suspect]
     Active Substance: TACROLIMUS
     Indication: Prophylaxis against transplant rejection
     Route: 065

REACTIONS (6)
  - Hepatic echinococciasis [Recovered/Resolved]
  - Echinococciasis [Unknown]
  - Haemangioma [Unknown]
  - Focal nodular hyperplasia [Unknown]
  - Biliary adenoma [Unknown]
  - Abscess [Unknown]

NARRATIVE: CASE EVENT DATE: 20180101
